FAERS Safety Report 13767795 (Version 3)
Quarter: 2017Q3

REPORT INFORMATION
  Report Type: Spontaneous
  Country: US (occurrence: US)
  Receive Date: 20170719
  Receipt Date: 20170801
  Transmission Date: 20171127
  Serious: No
  Sender: FDA-Public Use
  Company Number: US-PFIZER INC-2017305589

PATIENT
  Age: 56 Year
  Sex: Female

DRUGS (1)
  1. METHOTREXATE SODIUM. [Suspect]
     Active Substance: METHOTREXATE SODIUM
     Indication: RHEUMATOID ARTHRITIS
     Dosage: 6 DF, WEEKLY
     Dates: start: 20161121

REACTIONS (4)
  - Pain in extremity [Unknown]
  - Blood urea increased [Unknown]
  - Blood glucose increased [Unknown]
  - Drug ineffective [Unknown]
